FAERS Safety Report 7019836-6 (Version None)
Quarter: 2010Q3

REPORT INFORMATION
  Report Type: 
  Country: None (occurrence: None)
  Receive Date: 20100922
  Receipt Date: 20100518
  Transmission Date: 20110219
  Serious: Yes (Hospitalization)
  Sender: FDA-Public Use
  Company Number: 010995

PATIENT
  Sex: Female

DRUGS (9)
  1. CERTOLIZUMAB PEGOL (CERTOLIZUMAB PEGOL) [Suspect]
     Indication: RHEUMATOID ARTHRITIS
     Dosage: 200 MG 1X/2 WEEKS SUBCUTANEOUS, SUBCUTANEOUS
     Route: 058
     Dates: start: 20090820
  2. CERTOLIZUMAB PEGOL (CERTOLIZUMAB PEGOL) [Suspect]
     Indication: RHEUMATOID ARTHRITIS
     Dosage: 200 MG 1X/2 WEEKS SUBCUTANEOUS, SUBCUTANEOUS
     Route: 058
     Dates: start: 20100526
  3. PREDNISOLONE [Suspect]
     Indication: RHEUMATOID ARTHRITIS
     Dosage: 2 MG ORAL
     Route: 048
     Dates: start: 20090331
  4. VOLTAREN [Suspect]
     Indication: RHEUMATOID ARTHRITIS
     Dosage: ADEQUATE  DOSE, AS NEEDED TRANSDERMAL
     Route: 062
     Dates: start: 20090528
  5. DICLOFENAC SODIUM [Concomitant]
  6. ROXATIDINE ACETATE HCL [Concomitant]
  7. TRIAZOLAM [Concomitant]
  8. ISONIAZID [Concomitant]
  9. PYRIDOXAL PHOSPHATE [Concomitant]

REACTIONS (1)
  - SUBARACHNOID HAEMORRHAGE [None]
